FAERS Safety Report 12131316 (Version 1)
Quarter: 2016Q1

REPORT INFORMATION
  Report Type: Spontaneous
  Country: US (occurrence: US)
  Receive Date: 20160301
  Receipt Date: 20160301
  Transmission Date: 20160526
  Serious: Yes (Other)
  Sender: FDA-Public Use
  Company Number: US-PFIZER INC-2016112508

PATIENT

DRUGS (1)
  1. NEURONTIN [Suspect]
     Active Substance: GABAPENTIN
     Dosage: 800 MG, 4X/DAY

REACTIONS (4)
  - Impaired work ability [Unknown]
  - Impaired driving ability [Unknown]
  - Visual impairment [Unknown]
  - Vitreous floaters [Unknown]
